FAERS Safety Report 6704226-3 (Version None)
Quarter: 2010Q2

REPORT INFORMATION
  Report Type: 
  Country: None (occurrence: None)
  Receive Date: 20100430
  Receipt Date: 20100420
  Transmission Date: 20101027
  Serious: Yes (Hospitalization)
  Sender: FDA-Public Use
  Company Number: FR-PFIZER INC-2010050302

PATIENT
  Age: 50 Year
  Sex: Male

DRUGS (2)
  1. NEURONTIN [Suspect]
     Indication: PARAESTHESIA
     Dosage: 400 MG, 1X/DAY
     Route: 048
     Dates: start: 20100315, end: 20100318
  2. LOVENOX [Concomitant]

REACTIONS (1)
  - CYTOLYTIC HEPATITIS [None]
